FAERS Safety Report 11645101 (Version 1)
Quarter: 2015Q4

REPORT INFORMATION
  Report Type: Report from Study
  Country: US (occurrence: US)
  Receive Date: 20151020
  Receipt Date: 20151020
  Transmission Date: 20160304
  Serious: Yes (Hospitalization)
  Sender: FDA-Public Use
  Company Number: US-JNJFOC-20151012620

PATIENT
  Age: 22 Year
  Sex: Male
  Weight: 74.84 kg

DRUGS (1)
  1. REMICADE [Suspect]
     Active Substance: INFLIXIMAB
     Indication: CROHN^S DISEASE
     Route: 042
     Dates: start: 2014, end: 20150915

REACTIONS (8)
  - Malaise [Recovered/Resolved]
  - Swelling [Recovered/Resolved]
  - Intestinal obstruction [Recovered/Resolved]
  - Drug specific antibody present [Unknown]
  - Drug ineffective [Unknown]
  - Inflammation [Recovered/Resolved]
  - Infusion related reaction [Recovered/Resolved]
  - Dyspnoea [Recovered/Resolved]

NARRATIVE: CASE EVENT DATE: 201501
